APPROVED DRUG PRODUCT: MORPHINE SULFATE
Active Ingredient: MORPHINE SULFATE
Strength: 100MG/5ML
Dosage Form/Route: SOLUTION;ORAL
Application: A203518 | Product #002 | TE Code: AA
Applicant: TRIS PHARMA INC
Approved: May 12, 2015 | RLD: No | RS: No | Type: RX